FAERS Safety Report 18712900 (Version 1)
Quarter: 2021Q1

REPORT INFORMATION
  Report Type: Report from Study
  Country: US (occurrence: US)
  Receive Date: 20210107
  Receipt Date: 20210107
  Transmission Date: 20210419
  Serious: No
  Sender: FDA-Public Use
  Company Number: NVSC2021US002701

PATIENT
  Sex: Female

DRUGS (1)
  1. COSENTYX [Suspect]
     Active Substance: SECUKINUMAB
     Indication: PSORIATIC ARTHROPATHY
     Dosage: 300 MG, OTHER (ONCE WEEKLY FOR  WEEKS, THEN ONCE EVERY 4 WEEKS )
     Route: 058
     Dates: start: 20201216

REACTIONS (3)
  - Abdominal discomfort [Recovered/Resolved]
  - Headache [Unknown]
  - Migraine [Unknown]
